FAERS Safety Report 6413095-0 (Version None)
Quarter: 2009Q4

REPORT INFORMATION
  Report Type: 
  Country: None (occurrence: None)
  Receive Date: 20091022
  Receipt Date: 20091022
  Transmission Date: 20100525
  Serious: No
  Sender: FDA-Public Use
  Company Number: None

PATIENT
  Age: 57 Year
  Sex: Female

DRUGS (2)
  1. INSULIN [Suspect]
     Dosage: IV
     Route: 042
  2. REGULAR INSULIN [Suspect]
     Dosage: SQ
     Route: 058

REACTIONS (1)
  - INCORRECT DOSE ADMINISTERED [None]
